FAERS Safety Report 7563236-7 (Version None)
Quarter: 2011Q2

REPORT INFORMATION
  Report Type: 
  Country: None (occurrence: None)
  Receive Date: 20110621
  Receipt Date: 20110621
  Transmission Date: 20111010
  Serious: Yes (Disabling)
  Sender: FDA-Public Use
  Company Number: None

PATIENT
  Age: 68 Year
  Sex: Female
  Weight: 58.9676 kg

DRUGS (2)
  1. AMIODARONE HCL [Suspect]
     Indication: ATRIAL FIBRILLATION
  2. DRONEDARONE HCL [Suspect]
     Indication: ATRIAL FIBRILLATION
     Dosage: 400 MG 2X DAILY ON FULL

REACTIONS (7)
  - VISUAL IMPAIRMENT [None]
  - RETINAL VEIN OCCLUSION [None]
  - THYROID DISORDER [None]
  - PRODUCT LABEL ISSUE [None]
  - PANIC ATTACK [None]
  - ATRIAL FIBRILLATION [None]
  - SLEEP DISORDER [None]
